FAERS Safety Report 12538052 (Version 1)
Quarter: 2016Q3

REPORT INFORMATION
  Report Type: Spontaneous
  Country: FR (occurrence: FR)
  Receive Date: 20160707
  Receipt Date: 20160707
  Transmission Date: 20161109
  Serious: Yes (Hospitalization)
  Sender: FDA-Public Use
  Company Number: FR-GE HEALTHCARE MEDICAL DIAGNOSTICS-VISP-PR-1607S-0395

PATIENT
  Age: 51 Year
  Sex: Male

DRUGS (6)
  1. XYLOCAINE [Concomitant]
     Active Substance: LIDOCAINE HYDROCHLORIDE
     Dates: start: 20160603, end: 20160603
  2. VISIPAQUE [Suspect]
     Active Substance: IODIXANOL
     Indication: DIAGNOSTIC PROCEDURE
     Route: 042
     Dates: start: 20160603, end: 20160603
  3. VISIPAQUE [Suspect]
     Active Substance: IODIXANOL
     Indication: HAEMOPTYSIS
     Route: 042
     Dates: start: 20160603, end: 20160603
  4. XENETIX [Suspect]
     Active Substance: IOBITRIDOL
     Route: 042
     Dates: start: 20160602, end: 20160602
  5. REMIFENTANIL [Concomitant]
     Active Substance: REMIFENTANIL
     Dates: start: 20160602, end: 20160602
  6. NICARDIPINE [Concomitant]
     Active Substance: NICARDIPINE
     Route: 042
     Dates: start: 20160602, end: 20160602

REACTIONS (2)
  - Rash [Unknown]
  - Eosinophilia [Unknown]

NARRATIVE: CASE EVENT DATE: 20160605
